FAERS Safety Report 9498403 (Version 7)
Quarter: 2015Q2

REPORT INFORMATION
  Report Type: Spontaneous
  Country: US (occurrence: US)
  Receive Date: 20130904
  Receipt Date: 20150515
  Transmission Date: 20150821
  Serious: Yes (Death, Hospitalization, Other)
  Sender: FDA-Public Use
  Company Number: US-GLAXOSMITHKLINE-A1039875A

PATIENT
  Age: 41 Year
  Sex: Female

DRUGS (10)
  1. METHOTREXATE [Concomitant]
     Active Substance: METHOTREXATE
  2. MYCOPHENOLATE MOFETIL. [Concomitant]
     Active Substance: MYCOPHENOLATE MOFETIL
     Indication: SYSTEMIC LUPUS ERYTHEMATOSUS
     Route: 065
  3. CYTOXAN [Concomitant]
     Active Substance: CYCLOPHOSPHAMIDE
  4. ACTHAR GEL HP [Concomitant]
  5. STEROIDS [Concomitant]
     Active Substance: UNSPECIFIED INGREDIENT
  6. CORTICOSTEROIDS [Concomitant]
     Active Substance: CORTICOSTEROID NOS
  7. CELLCEPT [Suspect]
     Active Substance: MYCOPHENOLATE MOFETIL\MYCOPHENOLATE MOFETIL HYDROCHLORIDE
     Indication: PRODUCT USED FOR UNKNOWN INDICATION
     Route: 065
  8. PREDNISONE. [Concomitant]
     Active Substance: PREDNISONE
     Indication: SYSTEMIC LUPUS ERYTHEMATOSUS
     Route: 065
  9. BENLYSTA [Suspect]
     Active Substance: BELIMUMAB
     Indication: SYSTEMIC LUPUS ERYTHEMATOSUS
     Dosage: TOTAL OF 10 MONTHLY BELIMUMAB INFUSIONS FROMAUGUST 2012 THROUGH APRIL 2013.
     Route: 042
     Dates: start: 201208, end: 20130406
  10. SOLU-MEDROL [Concomitant]
     Active Substance: METHYLPREDNISOLONE SODIUM SUCCINATE

REACTIONS (19)
  - Progressive multifocal leukoencephalopathy [Fatal]
  - Abasia [Not Recovered/Not Resolved]
  - VIIth nerve paralysis [Not Recovered/Not Resolved]
  - Lupus encephalitis [Not Recovered/Not Resolved]
  - Hypertension [Unknown]
  - JC virus infection [Not Recovered/Not Resolved]
  - Speech disorder [Not Recovered/Not Resolved]
  - Ill-defined disorder [Unknown]
  - Neurological decompensation [Unknown]
  - Aphasia [Not Recovered/Not Resolved]
  - Sensation of foreign body [Not Recovered/Not Resolved]
  - Dysphagia [Not Recovered/Not Resolved]
  - Dystonia [Unknown]
  - Viral infection [Not Recovered/Not Resolved]
  - Drooling [Not Recovered/Not Resolved]
  - Cerebrovascular accident [Not Recovered/Not Resolved]
  - Tachycardia [Unknown]
  - Bulbar palsy [Unknown]
  - Swelling face [Not Recovered/Not Resolved]

NARRATIVE: CASE EVENT DATE: 201304
